FAERS Safety Report 5246615-2 (Version None)
Quarter: 2007Q1

REPORT INFORMATION
  Report Type: 
  Country: None (occurrence: None)
  Receive Date: 20070222
  Receipt Date: 20070222
  Transmission Date: 20070707
  Serious: Yes (Hospitalization)
  Sender: FDA-Public Use
  Company Number: None

PATIENT
  Age: 49 Year
  Sex: Female
  Weight: 90.7 kg

DRUGS (2)
  1. METFORMIN HCL [Suspect]
     Indication: DIABETES MELLITUS
     Dosage: 1000 MG TWICE DAILY PO
     Route: 048
     Dates: start: 20060710, end: 20070209
  2. NPH ILETIN II [Suspect]
     Indication: DIABETES MELLITUS
     Dosage: 25 UNITS IN AM, 30 UNITS IN PM SQ
     Route: 058
     Dates: start: 20060628, end: 20070209

REACTIONS (2)
  - HYPERGLYCAEMIA [None]
  - TREATMENT NONCOMPLIANCE [None]
